FAERS Safety Report 24310673 (Version 1)
Quarter: 2024Q3

REPORT INFORMATION
  Report Type: Spontaneous
  Country: US (occurrence: US)
  Receive Date: 20240912
  Receipt Date: 20240912
  Transmission Date: 20241016
  Serious: No
  Sender: AMNEAL
  Company Number: US-AMNEAL PHARMACEUTICALS-2023-AMRX-04381

PATIENT
  Sex: Female

DRUGS (2)
  1. BUDESONIDE [Suspect]
     Active Substance: BUDESONIDE
     Indication: Product used for unknown indication
     Dosage: 2 CAPSULES, QD (6MG)
     Route: 048
     Dates: start: 202310
  2. BUDESONIDE [Suspect]
     Active Substance: BUDESONIDE
     Dosage: 1 CAPSULES, QD (3 MG)
     Route: 048

REACTIONS (1)
  - Drug ineffective [Unknown]
